FAERS Safety Report 9253231 (Version 4)
Quarter: 2013Q2

REPORT INFORMATION
  Report Type: Spontaneous
  Country: US (occurrence: US)
  Receive Date: 20130424
  Receipt Date: 20130624
  Transmission Date: 20140414
  Serious: Yes (Death, Hospitalization)
  Sender: FDA-Public Use
  Company Number: US-BAXTER-2013BAX010029

PATIENT
  Age: 65 Year
  Sex: Female

DRUGS (4)
  1. DIANEAL LOW CALCIUM [Suspect]
     Indication: PERITONEAL DIALYSIS
     Route: 033
     Dates: start: 20090709
  2. DIANEAL LOW CALCIUM [Suspect]
     Route: 033
  3. EXTRANEAL [Suspect]
     Indication: PERITONEAL DIALYSIS
     Route: 033
     Dates: start: 20090709
  4. EXTRANEAL [Suspect]
     Route: 033

REACTIONS (5)
  - Post procedural infection [Fatal]
  - Arterial occlusive disease [Recovering/Resolving]
  - Gastrointestinal fistula [Unknown]
  - Peritonitis [Unknown]
  - Asthenia [Recovering/Resolving]
